FAERS Safety Report 17303290 (Version 2)
Quarter: 2020Q1

REPORT INFORMATION
  Report Type: Spontaneous
  Country: US (occurrence: US)
  Receive Date: 20200122
  Receipt Date: 20200212
  Transmission Date: 20200409
  Serious: No
  Sender: FDA-Public Use
  Company Number: US-SA-2020SA015284

PATIENT
  Age: 60 Year
  Sex: Female

DRUGS (1)
  1. TOUJEO [Suspect]
     Active Substance: INSULIN GLARGINE
     Indication: TYPE 1 DIABETES MELLITUS
     Dosage: 38 IU, QD (EVERY MORNING)
     Route: 065

REACTIONS (3)
  - Blood glucose increased [Unknown]
  - Dyspnoea [Unknown]
  - Device operational issue [Unknown]
